APPROVED DRUG PRODUCT: METRONIDAZOLE
Active Ingredient: METRONIDAZOLE
Strength: 0.75%
Dosage Form/Route: GEL;VAGINAL
Application: A077264 | Product #001
Applicant: ENCUBE ETHICALS PRIVATE LTD
Approved: Oct 31, 2006 | RLD: No | RS: No | Type: DISCN